FAERS Safety Report 4963718-8 (Version None)
Quarter: 2006Q1

REPORT INFORMATION
  Report Type: 
  Country: None (occurrence: None)
  Receive Date: 20060330
  Receipt Date: 20060317
  Transmission Date: 20060701
  Serious: Yes (Death, Hospitalization, Other)
  Sender: FDA-Public Use
  Company Number: 2004106702

PATIENT
  Age: 35 Year
  Sex: Male
  Weight: 74.3899 kg

DRUGS (16)
  1. NEURONTIN [Suspect]
     Indication: MUSCLE SPASMS
  2. NEURONTIN [Suspect]
     Indication: PAIN
  3. TRAMADOL HCL [Suspect]
     Indication: ILL-DEFINED DISORDER
  4. ACETAMINOPHEN [Suspect]
     Indication: ILL-DEFINED DISORDER
  5. MEPROBAMATE [Suspect]
     Indication: ILL-DEFINED DISORDER
  6. CARISOPRODOL [Suspect]
     Indication: ILL-DEFINED DISORDER
     Dates: start: 20000720
  7. HYDROCODONE BITARTRATE [Suspect]
     Indication: ILL-DEFINED DISORDER
     Dates: start: 20000720
  8. ETHANOL [Concomitant]
  9. OXYCODONE [Concomitant]
  10. PROMETHAZINE [Concomitant]
  11. SKELAXIN [Concomitant]
  12. CATAFLAM [Concomitant]
  13. DARVOCET [Concomitant]
  14. VIOXX [Concomitant]
  15. TETRACYCLINE [Concomitant]
  16. ZOVIRAX [Concomitant]

REACTIONS (21)
  - ACTIVITIES OF DAILY LIVING IMPAIRED [None]
  - BACK PAIN [None]
  - CELLULITIS [None]
  - COMPLETED SUICIDE [None]
  - DEPRESSION [None]
  - DRUG INEFFECTIVE [None]
  - DRUG TOXICITY [None]
  - INJURY [None]
  - INSOMNIA [None]
  - INTERVERTEBRAL DISC PROTRUSION [None]
  - INTERVERTEBRAL DISC SPACE NARROWING [None]
  - MASS [None]
  - MUSCLE SPASMS [None]
  - NECK PAIN [None]
  - PULMONARY CONGESTION [None]
  - PULMONARY OEDEMA [None]
  - SHOULDER PAIN [None]
  - SPINAL CORD DISORDER [None]
  - SPINAL CORD INJURY CERVICAL [None]
  - SPINAL OSTEOARTHRITIS [None]
  - SUICIDAL IDEATION [None]
